FAERS Safety Report 4461066-6 (Version None)
Quarter: 2004Q3

REPORT INFORMATION
  Report Type: 
  Country: None (occurrence: None)
  Receive Date: 20040923
  Receipt Date: 20040913
  Transmission Date: 20050211
  Serious: Yes (Death, Hospitalization)
  Sender: FDA-Public Use
  Company Number: US-JNJFOC-20040903510

PATIENT
  Age: 49 Year
  Sex: Female

DRUGS (2)
  1. CYCLOBENZAPRINE HYDROCHLORIDE [Suspect]
     Indication: SUICIDE ATTEMPT
     Dosage: 400 MG, 1 IN 1 DAY, ORAL
     Route: 048
  2. COLCHICINE (COLCHICINE) [Suspect]
     Indication: SUICIDE ATTEMPT
     Dosage: 27 MG, 1 IN 1 DAY, ORAL
     Route: 048

REACTIONS (18)
  - ALANINE AMINOTRANSFERASE INCREASED [None]
  - ANION GAP INCREASED [None]
  - ASPARTATE AMINOTRANSFERASE INCREASED [None]
  - BLOOD BICARBONATE DECREASED [None]
  - BLOOD CREATININE INCREASED [None]
  - BLOOD GLUCOSE DECREASED [None]
  - BLOOD SODIUM INCREASED [None]
  - BLOOD UREA INCREASED [None]
  - BODY TEMPERATURE INCREASED [None]
  - DEPRESSED LEVEL OF CONSCIOUSNESS [None]
  - DIARRHOEA [None]
  - HEART RATE INCREASED [None]
  - HYPOTENSION [None]
  - MULTIPLE DRUG OVERDOSE [None]
  - PANCYTOPENIA [None]
  - RESPIRATORY DISTRESS [None]
  - SOMNOLENCE [None]
  - VOMITING [None]
